FAERS Safety Report 21662589 (Version 1)
Quarter: 2022Q4

REPORT INFORMATION
  Report Type: Spontaneous
  Country: AR (occurrence: AR)
  Receive Date: 20221130
  Receipt Date: 20221130
  Transmission Date: 20230112
  Serious: Yes (Other)
  Sender: FDA-Public Use
  Company Number: AR-PFIZER INC-PV202200112427

PATIENT
  Age: 76 Year
  Sex: Female

DRUGS (2)
  1. IBRANCE [Suspect]
     Active Substance: PALBOCICLIB
     Indication: Breast cancer metastatic
     Dosage: 100 MG, DAILY 3X1 SCHEMA
     Dates: start: 20210812
  2. LETROZOLE [Concomitant]
     Active Substance: LETROZOLE

REACTIONS (3)
  - Cataract [Not Recovered/Not Resolved]
  - Amnesia [Not Recovered/Not Resolved]
  - Decreased immune responsiveness [Not Recovered/Not Resolved]

NARRATIVE: CASE EVENT DATE: 20221101
